FAERS Safety Report 18796282 (Version 1)
Quarter: 2021Q1

REPORT INFORMATION
  Report Type: Spontaneous
  Country: CN (occurrence: CN)
  Receive Date: 20210127
  Receipt Date: 20210127
  Transmission Date: 20210419
  Serious: Yes (Life-Threatening, Other)
  Sender: FDA-Public Use
  Company Number: CN-SA-2021SA025084

PATIENT
  Sex: Male

DRUGS (1)
  1. HARNAL [Suspect]
     Active Substance: TAMSULOSIN HYDROCHLORIDE
     Indication: PROSTATE CANCER
     Dosage: 0.2 MG, QD
     Route: 048
     Dates: start: 202012

REACTIONS (2)
  - Drug ineffective for unapproved indication [Unknown]
  - Prostate cancer [Unknown]

NARRATIVE: CASE EVENT DATE: 202012
